FAERS Safety Report 9546800 (Version 1)
Quarter: 2013Q3

REPORT INFORMATION
  Report Type: Spontaneous
  Country: US (occurrence: US)
  Receive Date: 20130924
  Receipt Date: 20130924
  Transmission Date: 20140515
  Serious: No
  Sender: FDA-Public Use
  Company Number: US-009507513-1309USA003845

PATIENT
  Sex: Male
  Weight: 86.17 kg

DRUGS (4)
  1. VICTRELIS [Suspect]
     Dosage: 800 MG, TID(TAKES FOUR 200 MG CAPSULES (800 MG) BY MOUTH THREE TIMES DAILY(EVERY 7 TO 9 HOURS)
     Route: 048
     Dates: start: 201303
  2. PEGASYS [Suspect]
  3. REBETOL [Suspect]
  4. CORTISONE [Concomitant]

REACTIONS (5)
  - Increased upper airway secretion [Unknown]
  - White blood cell count decreased [Unknown]
  - Pruritus [Unknown]
  - Dysgeusia [Unknown]
  - Weight decreased [Unknown]
